FAERS Safety Report 6349797-4 (Version None)
Quarter: 2009Q3

REPORT INFORMATION
  Report Type: 
  Country: None (occurrence: None)
  Receive Date: 20090911
  Receipt Date: 20090902
  Transmission Date: 20100115
  Serious: Yes (Other)
  Sender: FDA-Public Use
  Company Number: US-ABBOTT-09P-163-0595267-00

PATIENT
  Sex: Female

DRUGS (3)
  1. HUMIRA [Suspect]
     Indication: PSORIASIS
     Dosage: UNKNOWN
     Route: 058
     Dates: start: 20080101
  2. CYCLOSPORINE [Suspect]
     Indication: PSORIASIS
     Dosage: UNKNOWN
  3. METHOTREXATE [Concomitant]
     Indication: PSORIASIS
     Dosage: UNKNOWN

REACTIONS (2)
  - LEUKAEMIA [None]
  - PSORIASIS [None]
